APPROVED DRUG PRODUCT: METHYLDOPA AND HYDROCHLOROTHIAZIDE
Active Ingredient: HYDROCHLOROTHIAZIDE; METHYLDOPA
Strength: 30MG;500MG
Dosage Form/Route: TABLET;ORAL
Application: A070543 | Product #001
Applicant: CHARTWELL RX SCIENCES LLC
Approved: Jan 15, 1986 | RLD: No | RS: No | Type: DISCN